FAERS Safety Report 4981139-9 (Version None)
Quarter: 2006Q2

REPORT INFORMATION
  Report Type: 
  Country: None (occurrence: None)
  Receive Date: 20060418
  Receipt Date: 20060410
  Transmission Date: 20061013
  Serious: Yes (Hospitalization, Other)
  Sender: FDA-Public Use
  Company Number: HQWYE817104AUG04

PATIENT
  Age: 62 Year
  Sex: Female
  Weight: 47.67 kg

DRUGS (4)
  1. PREMPRO [Suspect]
     Indication: MENOPAUSE
     Dates: start: 19980101
  2. PREMARIN [Suspect]
     Dates: start: 19900101
  3. PROVERA [Suspect]
     Indication: MENOPAUSE
     Dates: start: 19900101
  4. FIORINAL (ACETYLSALICYLIC ACID/BUTALBITAL/CAFEINE) [Concomitant]

REACTIONS (7)
  - BREAST CANCER FEMALE [None]
  - CHEST WALL MASS [None]
  - EMOTIONAL DISORDER [None]
  - FATIGUE [None]
  - PAIN [None]
  - PSEUDOCYST [None]
  - RENAL CYST [None]
